FAERS Safety Report 13992316 (Version 1)
Quarter: 2017Q3

REPORT INFORMATION
  Report Type: Spontaneous
  Country: US (occurrence: US)
  Receive Date: 20170920
  Receipt Date: 20170920
  Transmission Date: 20171128
  Serious: No
  Sender: FDA-Public Use
  Company Number: US-JNJFOC-20170626556

PATIENT
  Age: 56 Year
  Sex: Female
  Weight: 66.23 kg

DRUGS (2)
  1. NIZORAL A-D [Suspect]
     Active Substance: KETOCONAZOLE
     Route: 061
  2. NIZORAL A-D [Suspect]
     Active Substance: KETOCONAZOLE
     Indication: ALOPECIA
     Dosage: TWICE A WEEK (DIME SIZE OR LESS)
     Route: 061
     Dates: start: 20170612, end: 20170619

REACTIONS (5)
  - Scab [Recovered/Resolved]
  - Paraesthesia [Recovered/Resolved]
  - Application site pain [Recovered/Resolved]
  - Pruritus [Recovered/Resolved]
  - Blister [Recovered/Resolved]

NARRATIVE: CASE EVENT DATE: 201706
